FAERS Safety Report 12455087 (Version 1)
Quarter: 2016Q2

REPORT INFORMATION
  Report Type: Spontaneous
  Country: US (occurrence: None)
  Receive Date: 20160609
  Receipt Date: 20160609
  Transmission Date: 20160815
  Serious: No
  Sender: FDA-Public Use
  Company Number: None

PATIENT
  Age: 59 Year
  Sex: Female

DRUGS (1)
  1. AVONEX [Suspect]
     Active Substance: INTERFERON BETA-1A
     Indication: MULTIPLE SCLEROSIS
     Dosage: 1 PEN ONCE WEEKLY INTRAMUSCULARLY
     Route: 030
     Dates: start: 20150904

REACTIONS (7)
  - Nausea [None]
  - Anxiety [None]
  - Dizziness [None]
  - Hyperhidrosis [None]
  - Somnolence [None]
  - Multiple sclerosis [None]
  - Back pain [None]

NARRATIVE: CASE EVENT DATE: 20160604
